FAERS Safety Report 7068147-1 (Version None)
Quarter: 2010Q4

REPORT INFORMATION
  Report Type: 
  Country: None (occurrence: None)
  Receive Date: 20101027
  Receipt Date: 20101027
  Transmission Date: 20110411
  Serious: Yes (Other)
  Sender: FDA-Public Use
  Company Number: None

PATIENT
  Age: 53 Year
  Sex: Male
  Weight: 73.9363 kg

DRUGS (2)
  1. RISPERDAL [Suspect]
     Indication: PSYCHOTIC DISORDER
     Dosage: 3 MG 3 TIMES PER DAY PO
     Route: 048
     Dates: start: 20080101, end: 20091201
  2. RISPERDAL [Suspect]
     Indication: PSYCHOTIC DISORDER
     Dosage: 4 MG 2 TIMES PER DAY PO
     Route: 048
     Dates: start: 20000101, end: 20080101

REACTIONS (4)
  - DRUG WITHDRAWAL SYNDROME [None]
  - DYSKINESIA [None]
  - PRODUCT QUALITY ISSUE [None]
  - PRURITUS GENERALISED [None]
